FAERS Safety Report 26195122 (Version 1)
Quarter: 2025Q4

REPORT INFORMATION
  Report Type: Spontaneous
  Country: CA (occurrence: CA)
  Receive Date: 20251224
  Receipt Date: 20251224
  Transmission Date: 20260117
  Serious: Yes (Other)
  Sender: TEVA
  Company Number: CA-TEVA-VS-3406803

PATIENT
  Age: 45 Year
  Sex: Female

DRUGS (2)
  1. PREDNISONE [Suspect]
     Active Substance: PREDNISONE
     Indication: Pemphigus
     Dosage: DOSE FORM: NOT SPECIFIED
     Route: 065
  2. MYCOPHENOLATE MOFETIL [Suspect]
     Active Substance: MYCOPHENOLATE MOFETIL
     Indication: Pemphigus
     Route: 065

REACTIONS (2)
  - Cerebrovascular accident [Unknown]
  - Viral vasculitis [Unknown]
